FAERS Safety Report 5123157-6 (Version None)
Quarter: 2006Q4

REPORT INFORMATION
  Report Type: 
  Country: None (occurrence: None)
  Receive Date: 20061009
  Receipt Date: 20060316
  Transmission Date: 20070319
  Serious: Yes (Other)
  Sender: FDA-Public Use
  Company Number: US-AVENTIS-200612769US

PATIENT
  Sex: Female
  Weight: 76.2 kg

DRUGS (8)
  1. KETEK [Suspect]
     Indication: SINUSITIS
     Dosage: DOSE: UNK
     Dates: start: 20050913, end: 20050917
  2. PRILOSEC [Concomitant]
     Dosage: DOSE: UNK
     Dates: end: 20050913
  3. COQ10 [Concomitant]
     Dosage: DOSE: UNK
  4. ATENOLOL [Concomitant]
     Indication: MITRAL VALVE PROLAPSE
     Route: 048
  5. CALCIUM GLUCONATE [Concomitant]
     Dosage: DOSE: UNK
  6. NEXIUM [Concomitant]
     Indication: SINUSITIS
     Dosage: DOSE: UNK
     Dates: start: 20050913
  7. MULTI-VITAMINS [Concomitant]
     Dosage: DOSE: UNK
  8. COMPOUNDED HORMONE REPLACEMENT THERAPY [Concomitant]
     Dosage: DOSE: UNK

REACTIONS (9)
  - ALANINE AMINOTRANSFERASE INCREASED [None]
  - ASPARTATE AMINOTRANSFERASE INCREASED [None]
  - BLOOD ALKALINE PHOSPHATASE INCREASED [None]
  - FATIGUE [None]
  - GALLBLADDER ENLARGEMENT [None]
  - GAMMA-GLUTAMYLTRANSFERASE INCREASED [None]
  - GASTROOESOPHAGEAL REFLUX DISEASE [None]
  - HEPATIC ENZYME INCREASED [None]
  - HIATUS HERNIA [None]
